FAERS Safety Report 19403189 (Version 1)
Quarter: 2021Q2

REPORT INFORMATION
  Report Type: Spontaneous
  Country: NL (occurrence: NL)
  Receive Date: 20210611
  Receipt Date: 20210611
  Transmission Date: 20210717
  Serious: Yes (Death, Other)
  Sender: FDA-Public Use
  Company Number: NL-BAYER-2021-155696

PATIENT
  Age: 71 Year
  Sex: Male

DRUGS (5)
  1. OXYGEN. [Concomitant]
     Active Substance: OXYGEN
     Indication: RESPIRATORY DISTRESS
     Dosage: 5 L
     Route: 055
     Dates: start: 20200327
  2. HYDROXYCARBAMIDE [Concomitant]
     Active Substance: HYDROXYUREA
     Indication: POLYCYTHAEMIA VERA
     Dosage: 500 MG, QD
  3. CHLOROQUINE. [Suspect]
     Active Substance: CHLOROQUINE
     Indication: COVID-19
     Dosage: 600 MG, LOADING DOSE
     Dates: start: 20200327
  4. CHLOROQUINE. [Suspect]
     Active Substance: CHLOROQUINE
     Indication: COVID-19
     Dosage: 300 MG, BID
     Dates: start: 20200327, end: 20200331
  5. OXYGEN. [Concomitant]
     Active Substance: OXYGEN
     Indication: RESPIRATORY DISTRESS
     Dosage: 15 L
     Route: 055
     Dates: start: 20200401

REACTIONS (6)
  - Pulmonary embolism [None]
  - Electrocardiogram P pulmonale [None]
  - Bundle branch block right [None]
  - Electrocardiogram T wave inversion [None]
  - Electrocardiogram QT prolonged [Unknown]
  - Off label use [None]

NARRATIVE: CASE EVENT DATE: 20200401
